FAERS Safety Report 4913065-5 (Version None)
Quarter: 2006Q1

REPORT INFORMATION
  Report Type: 
  Country: None (occurrence: None)
  Receive Date: 20060210
  Receipt Date: 20060202
  Transmission Date: 20060701
  Serious: Yes (Other)
  Sender: FDA-Public Use
  Company Number: 2006016498

PATIENT
  Sex: Male
  Weight: 95.2554 kg

DRUGS (1)
  1. LISTERINE ANTISEPTIC MOUTHWASH (MENTHOL, METHYL SALICYLATE, EUCALYPTOL [Suspect]
     Indication: DENTAL DISORDER PROPHYLAXIS
     Dosage: UNSPECIFIED AMOUNT, ONCE, ORAL
     Route: 048
     Dates: start: 19950101, end: 19950101

REACTIONS (4)
  - ABDOMINAL PAIN UPPER [None]
  - BRONCHIAL OEDEMA [None]
  - NASAL CONGESTION [None]
  - REACTION TO DRUG EXCIPIENTS [None]
